FAERS Safety Report 7368829-8 (Version None)
Quarter: 2011Q1

REPORT INFORMATION
  Report Type: 
  Country: None (occurrence: None)
  Receive Date: 20110323
  Receipt Date: 20100909
  Transmission Date: 20110831
  Serious: Yes (Hospitalization, Other)
  Sender: FDA-Public Use
  Company Number: US-BAYER-201022583NA

PATIENT
  Sex: Female
  Weight: 126.98 kg

DRUGS (9)
  1. YASMIN [Suspect]
     Indication: CONTRACEPTION
     Dosage: UNK
     Route: 048
     Dates: start: 20090101
  2. CORTAB [Concomitant]
     Dosage: 7.5 MG, UNK
  3. YAZ [Suspect]
     Indication: CONTRACEPTION
     Dosage: UNK
     Route: 048
     Dates: start: 20090101
  4. LEVAQUIN [Concomitant]
     Dosage: UNK
     Dates: start: 20090405
  5. KALETRA [Concomitant]
     Dosage: 200 MG, BID
  6. METRONIDAZOLE [Concomitant]
  7. ZIDOVUDINE [Concomitant]
     Dosage: 300 MG, BID
  8. PRENATAL VITAMINS [Concomitant]
  9. EPIVIR [Concomitant]
     Dosage: 300 MG, QD

REACTIONS (1)
  - PULMONARY EMBOLISM [None]
